FAERS Safety Report 7216054-3 (Version None)
Quarter: 2011Q1

REPORT INFORMATION
  Report Type: 
  Country: None (occurrence: None)
  Receive Date: 20110107
  Receipt Date: 20101229
  Transmission Date: 20110831
  Serious: Yes (Other)
  Sender: FDA-Public Use
  Company Number: TH-GENENTECH-311899

PATIENT
  Sex: Female

DRUGS (1)
  1. MABTHERA [Suspect]
     Indication: NON-HODGKIN'S LYMPHOMA
     Dosage: 600 MG, UNK
     Route: 042

REACTIONS (6)
  - DRY MOUTH [None]
  - INFUSION RELATED REACTION [None]
  - DYSPHAGIA [None]
  - FEELING COLD [None]
  - HEADACHE [None]
  - NAUSEA [None]
